FAERS Safety Report 7859439-4 (Version None)
Quarter: 2011Q4

REPORT INFORMATION
  Report Type: 
  Country: None (occurrence: None)
  Receive Date: 20111027
  Receipt Date: 20111014
  Transmission Date: 20120403
  Serious: Yes (Hospitalization)
  Sender: FDA-Public Use
  Company Number: US-BAYER-2011-055966

PATIENT
  Age: 18 Year
  Sex: Female
  Weight: 81 kg

DRUGS (7)
  1. VICODIN [Concomitant]
     Dosage: UNK UNK, PRN
  2. ULTRAM [Concomitant]
     Dosage: 100 MG, PRN
     Route: 048
  3. COMPAZINE [Concomitant]
     Dosage: 25 MG, PRN
     Route: 048
  4. ZOFRAN [Concomitant]
     Indication: VOMITING
  5. YAZ [Suspect]
     Indication: PREMENSTRUAL SYNDROME
     Dosage: UNK
     Dates: start: 20060101, end: 20080101
  6. PHENERGAN HCL [Concomitant]
     Dosage: 25 MG, PRN
     Route: 048
  7. YAZ [Suspect]
     Indication: CONTRACEPTION

REACTIONS (5)
  - INJURY [None]
  - GALLBLADDER DISORDER [None]
  - PAIN [None]
  - CHOLECYSTITIS CHRONIC [None]
  - BILIARY DYSKINESIA [None]
